FAERS Safety Report 16995235 (Version 5)
Quarter: 2020Q2

REPORT INFORMATION
  Report Type: Report from Study
  Country: IL (occurrence: IL)
  Receive Date: 20191105
  Receipt Date: 20200515
  Transmission Date: 20200713
  Serious: Yes (Other)
  Sender: FDA-Public Use
  Company Number: PHHY2019IL141611

PATIENT
  Age: 73 Year
  Sex: Female

DRUGS (4)
  1. KISQALI [Suspect]
     Active Substance: RIBOCICLIB
     Dosage: 600 MG, QD
     Route: 048
  2. KISQALI [Suspect]
     Active Substance: RIBOCICLIB
     Dosage: 600 MG, QD
     Route: 048
     Dates: start: 20191104
  3. KISQALI [Suspect]
     Active Substance: RIBOCICLIB
     Indication: BREAST CANCER
     Dosage: 600 MG, QD
     Route: 048
     Dates: start: 20190603
  4. KISQALI [Suspect]
     Active Substance: RIBOCICLIB
     Dosage: 600 MG, QD
     Route: 048
     Dates: end: 20191022

REACTIONS (22)
  - Swelling [Recovering/Resolving]
  - Cough [Not Recovered/Not Resolved]
  - Neutrophil count decreased [Recovering/Resolving]
  - Dyspepsia [Not Recovered/Not Resolved]
  - Diarrhoea [Recovered/Resolved]
  - Erythema [Recovering/Resolving]
  - Nasopharyngitis [Not Recovered/Not Resolved]
  - Abdominal pain [Recovered/Resolved]
  - Full blood count decreased [Unknown]
  - Nausea [Recovered/Resolved]
  - Erysipelas [Recovering/Resolving]
  - Tumour marker increased [Not Recovered/Not Resolved]
  - Vomiting [Recovered/Resolved]
  - Vomiting [Recovered/Resolved]
  - Musculoskeletal pain [Not Recovered/Not Resolved]
  - General physical health deterioration [Recovered/Resolved]
  - Nausea [Recovered/Resolved]
  - Pruritus [Recovering/Resolving]
  - Fatigue [Recovered/Resolved]
  - Chills [Recovered/Resolved]
  - Poor quality sleep [Not Recovered/Not Resolved]
  - Pyrexia [Not Recovered/Not Resolved]

NARRATIVE: CASE EVENT DATE: 20190606
